FAERS Safety Report 7655575-6 (Version None)
Quarter: 2011Q3

REPORT INFORMATION
  Report Type: 
  Country: None (occurrence: None)
  Receive Date: 20110804
  Receipt Date: 20110727
  Transmission Date: 20111222
  Serious: Yes (Hospitalization)
  Sender: FDA-Public Use
  Company Number: PHFR2011GB04480

PATIENT
  Sex: Female

DRUGS (2)
  1. CLOZAPINE [Suspect]
     Route: 065
     Dates: start: 20010701
  2. CLOZAPINE [Suspect]
     Indication: SCHIZOPHRENIA
     Route: 065
     Dates: start: 19980918

REACTIONS (2)
  - INFECTION [None]
  - HAEMOGLOBIN DECREASED [None]
